FAERS Safety Report 8019205-6 (Version None)
Quarter: 2011Q4

REPORT INFORMATION
  Report Type: 
  Country: None (occurrence: None)
  Receive Date: 20111227
  Receipt Date: 20111213
  Transmission Date: 20120403
  Serious: Yes (Other)
  Sender: FDA-Public Use
  Company Number: 1139906

PATIENT
  Age: 53 Year
  Sex: Female
  Weight: 64.9 kg

DRUGS (5)
  1. FENTANYL CITRATE [Concomitant]
  2. DESFLURANE [Concomitant]
  3. KETOROLAC TROMETHAMINE [Concomitant]
  4. SUCCINYLCHOLINE CHLORIDE [Suspect]
     Indication: ENDOTRACHEAL INTUBATION
     Dosage: 100 MG, INTRAVENOUS (NOT OTHERWISE SPECIFIED)
  5. PROPOFOL [Concomitant]

REACTIONS (3)
  - NEUROMUSCULAR BLOCK PROLONGED [None]
  - BLOOD PRESSURE SYSTOLIC INCREASED [None]
  - HEART RATE INCREASED [None]
